FAERS Safety Report 5329643-8 (Version None)
Quarter: 2007Q1

REPORT INFORMATION
  Report Type: 
  Country: None (occurrence: None)
  Receive Date: 20070227
  Receipt Date: 20060706
  Transmission Date: 20070707
  Serious: Yes (Other)
  Sender: FDA-Public Use
  Company Number: 454536

PATIENT
  Age: 16 Year
  Weight: 127 kg

DRUGS (1)
  1. ACCUTANE [Suspect]
     Indication: ACNE
     Dosage: 20 MG 3 PER DAY ORAL
     Route: 048
     Dates: start: 20060403, end: 20060522

REACTIONS (1)
  - LIVER FUNCTION TEST ABNORMAL [None]
